FAERS Safety Report 6470955-2 (Version None)
Quarter: 2009Q4

REPORT INFORMATION
  Report Type: 
  Country: None (occurrence: None)
  Receive Date: 20091203
  Receipt Date: 20080505
  Transmission Date: 20100525
  Serious: Yes (Death, Hospitalization)
  Sender: FDA-Public Use
  Company Number: US-ELI_LILLY_AND_COMPANY-US200801004702

PATIENT
  Sex: Male
  Weight: 102.4 kg

DRUGS (1)
  1. ZYPREXA [Suspect]
     Dosage: 20 MG, UNK
     Dates: start: 19990101

REACTIONS (3)
  - BLOOD GLUCOSE INCREASED [None]
  - DEATH [None]
  - DIABETES MELLITUS [None]
